FAERS Safety Report 12091186 (Version 1)
Quarter: 2016Q1

REPORT INFORMATION
  Report Type: Spontaneous
  Country: TN (occurrence: TN)
  Receive Date: 20160218
  Receipt Date: 20160218
  Transmission Date: 20160526
  Serious: Yes (Other)
  Sender: FDA-Public Use
  Company Number: TN-AKORN PHARMACEUTICALS-2016AKN00100

PATIENT
  Age: 45 Year
  Sex: Female

DRUGS (1)
  1. RIFAMPIN, ISONIAZID, PYRAZINAMIDE, AND ETHAMBUTOL [Suspect]
     Active Substance: ETHAMBUTOL\ISONIAZID\PYRAZINAMIDE\RIFAMPIN
     Indication: LYMPH NODE TUBERCULOSIS
     Dosage: 4 TABLETS, 1X/DAY
     Route: 065

REACTIONS (1)
  - Drug reaction with eosinophilia and systemic symptoms [Recovered/Resolved]
